FAERS Safety Report 10008490 (Version 1)
Quarter: 2014Q1

REPORT INFORMATION
  Report Type: Report from Study
  Country: US (occurrence: US)
  Receive Date: 20140313
  Receipt Date: 20140313
  Transmission Date: 20141002
  Serious: Yes (Hospitalization, Other)
  Sender: FDA-Public Use
  Company Number: US-TEVA-467984USA

PATIENT
  Age: 64 Year
  Sex: Male
  Weight: 99.7 kg

DRUGS (15)
  1. TREANDA [Suspect]
     Indication: CHRONIC LYMPHOCYTIC LEUKAEMIA
     Route: 042
     Dates: start: 20131030
  2. RITUXIMAB [Suspect]
     Indication: CHRONIC LYMPHOCYTIC LEUKAEMIA
     Route: 042
     Dates: start: 20131030
  3. GS-1101 [Suspect]
     Indication: CHRONIC LYMPHOCYTIC LEUKAEMIA
     Dosage: 200 MILLIGRAM DAILY;
     Route: 048
     Dates: start: 20131030
  4. ACYCLOVIR [Concomitant]
  5. AMOXICILLIN [Concomitant]
  6. ATORVASTATIN [Concomitant]
  7. BACTRIM DS [Concomitant]
  8. CETIRIZINE HYDROCHLORIDE [Concomitant]
  9. CIPRO [Concomitant]
  10. FLUCONAZOLE [Concomitant]
  11. LORAZEPAM [Concomitant]
  12. LORAZEPAM [Concomitant]
  13. METFORMIN HYDROCHLORIDE [Concomitant]
  14. MIRACLE MOUTHWASH [Concomitant]
  15. NIASPAN [Concomitant]

REACTIONS (4)
  - Neutropenia [Not Recovered/Not Resolved]
  - Anaemia [Recovered/Resolved]
  - Pancytopenia [Unknown]
  - Thrombocytopenia [Not Recovered/Not Resolved]
